FAERS Safety Report 18438566 (Version 1)
Quarter: 2020Q4

REPORT INFORMATION
  Report Type: Spontaneous
  Country: US (occurrence: US)
  Receive Date: 20201028
  Receipt Date: 20201028
  Transmission Date: 20210114
  Serious: No
  Sender: FDA-Public Use
  Company Number: US-BRISTOL-MYERS SQUIBB COMPANY-BMS-2020-089538

PATIENT
  Sex: Female
  Weight: 78 kg

DRUGS (1)
  1. ELIQUIS [Suspect]
     Active Substance: APIXABAN
     Indication: CEREBROVASCULAR ACCIDENT PROPHYLAXIS
     Dosage: 5 MILLIGRAM, BID
     Route: 048
     Dates: start: 202002

REACTIONS (10)
  - Condition aggravated [Unknown]
  - Gait disturbance [Unknown]
  - Hyperhidrosis [Unknown]
  - Impatience [Unknown]
  - Back disorder [Unknown]
  - Fall [Unknown]
  - Fatigue [Unknown]
  - Anxiety [Unknown]
  - Musculoskeletal discomfort [Unknown]
  - Pain [Unknown]

NARRATIVE: CASE EVENT DATE: 2020
